FAERS Safety Report 18979705 (Version 1)
Quarter: 2021Q1

REPORT INFORMATION
  Report Type: Spontaneous
  Country: DE (occurrence: DE)
  Receive Date: 20210308
  Receipt Date: 20210308
  Transmission Date: 20210420
  Serious: Yes (Hospitalization, Other)
  Sender: FDA-Public Use
  Company Number: DE-SA-2021SA072512

PATIENT
  Age: 18 Year
  Sex: Male
  Weight: 66 kg

DRUGS (9)
  1. THYMOGLOBULINE [Suspect]
     Active Substance: LAPINE T-LYMPHOCYTE IMMUNE GLOBULIN
     Indication: KIDNEY TRANSPLANT REJECTION
     Dosage: 50 MG, QD
  2. TACROLIMUS. [Concomitant]
     Active Substance: TACROLIMUS
  3. URAPIDIL [Concomitant]
     Active Substance: URAPIDIL
     Route: 042
  4. VALCYTE [Concomitant]
     Active Substance: VALGANCICLOVIR HYDROCHLORIDE
  5. METHYLPREDNISOLONE SODIUM SUCCINATE. [Concomitant]
     Active Substance: METHYLPREDNISOLONE SODIUM SUCCINATE
  6. COTRIM FORTE [Concomitant]
     Active Substance: SULFAMETHOXAZOLE\TRIMETHOPRIM
  7. MYFORTIC [Concomitant]
     Active Substance: MYCOPHENOLATE SODIUM
  8. HEPARIN [Concomitant]
     Active Substance: HEPARIN SODIUM
     Dosage: 600 IU, QH
     Route: 042
  9. GAMMANORM [Suspect]
     Active Substance: HUMAN IMMUNOGLOBULIN G
     Indication: KIDNEY TRANSPLANT REJECTION
     Dosage: 1.65 G, QD
     Route: 058

REACTIONS (3)
  - Altered state of consciousness [Unknown]
  - General physical health deterioration [Unknown]
  - Cyanosis [Unknown]

NARRATIVE: CASE EVENT DATE: 20201214
